FAERS Safety Report 9937875 (Version 1)
Quarter: 2014Q1

REPORT INFORMATION
  Report Type: Spontaneous
  Country: US (occurrence: US)
  Receive Date: 20140303
  Receipt Date: 20140303
  Transmission Date: 20141002
  Serious: No
  Sender: FDA-Public Use
  Company Number: US-BIOGENIDEC-2014BI016570

PATIENT
  Age: 57 Year
  Sex: Female

DRUGS (13)
  1. TECFIDERA [Suspect]
     Indication: MULTIPLE SCLEROSIS
     Route: 048
     Dates: start: 201309
  2. AMITRIPTYLINE HCL [Concomitant]
  3. ASPIRIN- 81 [Concomitant]
  4. CARVEDILOL [Concomitant]
  5. CLONAZEPAM [Concomitant]
  6. DIAZEPAM [Concomitant]
  7. FOLPLEX 2.2 [Concomitant]
  8. HYOSCYAMINE SULFATE ER [Concomitant]
  9. LEVOTHYROXINE SODIUM [Concomitant]
  10. LOSARTAN POTASSIUM- HCTZ [Concomitant]
  11. OMEPRAZOLE [Concomitant]
  12. PERPHENAZINE [Concomitant]
  13. SERTRALINE HCL [Concomitant]

REACTIONS (2)
  - Dry skin [Unknown]
  - Gait disturbance [Unknown]
